FAERS Safety Report 13498845 (Version 2)
Quarter: 2017Q3

REPORT INFORMATION
  Report Type: Report from Study
  Country: US (occurrence: US)
  Receive Date: 20170501
  Receipt Date: 20170815
  Transmission Date: 20171127
  Serious: Yes (Other)
  Sender: FDA-Public Use
  Company Number: US-ROCHE-1893487

PATIENT

DRUGS (3)
  1. DEXAMETHASONE. [Suspect]
     Active Substance: DEXAMETHASONE
     Indication: IMMUNE THROMBOCYTOPENIC PURPURA
     Route: 065
  2. RITUXIMAB. [Suspect]
     Active Substance: RITUXIMAB
     Indication: IMMUNE THROMBOCYTOPENIC PURPURA
     Route: 065
  3. PREDNISONE. [Suspect]
     Active Substance: PREDNISONE
     Indication: IMMUNE THROMBOCYTOPENIC PURPURA
     Route: 065

REACTIONS (24)
  - Hyperglycaemia [Unknown]
  - Pyrexia [Unknown]
  - Infusion related reaction [Unknown]
  - Rash [Unknown]
  - Spinal fracture [Unknown]
  - Fatigue [Unknown]
  - Infection [Unknown]
  - Haemolysis [Unknown]
  - Anxiety [Unknown]
  - Dizziness [Unknown]
  - Insomnia [Unknown]
  - Mental status changes [Unknown]
  - Chills [Unknown]
  - Headache [Unknown]
  - Osteoporosis [Unknown]
  - Hypertension [Unknown]
  - Ataxia [Unknown]
  - Cellulitis [Unknown]
  - Fluid retention [Unknown]
  - Psychotic disorder [Unknown]
  - Serum sickness [Unknown]
  - Sepsis [Unknown]
  - Dyspepsia [Unknown]
  - Pneumonia [Unknown]
